FAERS Safety Report 14927700 (Version 1)
Quarter: 2018Q2

REPORT INFORMATION
  Report Type: Spontaneous
  Country: US (occurrence: US)
  Receive Date: 20180504
  Receipt Date: 20180504
  Transmission Date: 20180711
  Serious: No
  Sender: FDA-Public Use
  Company Number: None

PATIENT
  Age: 51 Year
  Sex: Female

DRUGS (1)
  1. HUMIRA [Suspect]
     Active Substance: ADALIMUMAB
     Indication: RHEUMATOID ARTHRITIS
     Dosage: ?          OTHER DOSE:40 MG/0.8 ML;?
     Route: 058
     Dates: start: 20080401

REACTIONS (2)
  - Herpes zoster [None]
  - Malaise [None]

NARRATIVE: CASE EVENT DATE: 20180301
